FAERS Safety Report 17683926 (Version 1)
Quarter: 2020Q2

REPORT INFORMATION
  Report Type: Spontaneous
  Country: US (occurrence: US)
  Receive Date: 20200417
  Receipt Date: 20200417
  Transmission Date: 20200714
  Serious: Yes (Death)
  Sender: FDA-Public Use
  Company Number: None

PATIENT
  Sex: Female

DRUGS (15)
  1. ERLOTINIB 100MG TEVA PHARMACEUTICALS USA [Suspect]
     Active Substance: ERLOTINIB
     Indication: LUNG CARCINOMA CELL TYPE UNSPECIFIED STAGE IV
  2. XALKORI [Suspect]
     Active Substance: CRIZOTINIB
     Indication: LUNG CARCINOMA CELL TYPE UNSPECIFIED STAGE IV
     Route: 048
     Dates: start: 20200203
  3. XALKORI [Suspect]
     Active Substance: CRIZOTINIB
     Indication: METASTASES TO LIVER
     Route: 048
     Dates: start: 20200304
  4. XALKORI [Suspect]
     Active Substance: CRIZOTINIB
     Indication: METASTASES TO CENTRAL NERVOUS SYSTEM
     Route: 048
     Dates: start: 20200203
  5. ERLOTINIB 100MG TEVA PHARMACEUTICALS USA [Suspect]
     Active Substance: ERLOTINIB
     Indication: CHOLANGIOCARCINOMA
  6. XALKORI [Suspect]
     Active Substance: CRIZOTINIB
     Indication: METASTASES TO CENTRAL NERVOUS SYSTEM
     Route: 048
     Dates: start: 20200304
  7. ERLOTINIB 100MG TEVA PHARMACEUTICALS USA [Suspect]
     Active Substance: ERLOTINIB
     Indication: METASTASES TO LIVER
  8. ERLOTINIB 100MG TEVA PHARMACEUTICALS USA [Suspect]
     Active Substance: ERLOTINIB
     Indication: METASTASIS
  9. ERLOTINIB 100MG TEVA PHARMACEUTICALS USA [Suspect]
     Active Substance: ERLOTINIB
     Indication: METASTASES TO CENTRAL NERVOUS SYSTEM
  10. XALKORI [Suspect]
     Active Substance: CRIZOTINIB
     Indication: METASTASIS
     Route: 048
     Dates: start: 20200304
  11. XALKORI [Suspect]
     Active Substance: CRIZOTINIB
     Indication: METASTASES TO LIVER
     Route: 048
     Dates: start: 20200203
  12. XALKORI [Suspect]
     Active Substance: CRIZOTINIB
     Indication: LUNG CARCINOMA CELL TYPE UNSPECIFIED STAGE IV
     Route: 048
     Dates: start: 20200304
  13. XALKORI [Suspect]
     Active Substance: CRIZOTINIB
     Indication: CHOLANGIOCARCINOMA
     Route: 048
     Dates: start: 20200304
  14. XALKORI [Suspect]
     Active Substance: CRIZOTINIB
     Indication: CHOLANGIOCARCINOMA
     Route: 048
     Dates: start: 20200203
  15. XALKORI [Suspect]
     Active Substance: CRIZOTINIB
     Indication: METASTASIS
     Route: 048
     Dates: start: 20200203

REACTIONS (1)
  - Death [None]
